FAERS Safety Report 23033141 (Version 1)
Quarter: 2023Q4

REPORT INFORMATION
  Report Type: Spontaneous
  Country: CZ (occurrence: CZ)
  Receive Date: 20231005
  Receipt Date: 20231005
  Transmission Date: 20240110
  Serious: Yes (Life-Threatening, Other)
  Sender: FDA-Public Use
  Company Number: None

PATIENT
  Age: 51 Year
  Sex: Female
  Weight: 89 kg

DRUGS (6)
  1. OGIVRI [Suspect]
     Active Substance: TRASTUZUMAB-DKST
     Indication: Breast cancer
     Dosage: 700 MILLIGRAM FURTHER ADMINISTRATION
     Route: 042
     Dates: start: 20230828, end: 20230828
  2. OGIVRI [Suspect]
     Active Substance: TRASTUZUMAB-DKST
     Dosage: 500 MILLIGRAM FURTHER ADMINISTRATION WILL BE ACCO
     Route: 042
     Dates: start: 20230918, end: 20230918
  3. PACLITAXEL [Suspect]
     Active Substance: PACLITAXEL
     Indication: Breast cancer
     Dosage: 160 MILLIGRAM
     Route: 042
     Dates: start: 20230828, end: 20230828
  4. PACLITAXEL [Suspect]
     Active Substance: PACLITAXEL
     Dosage: 130 MILLIGRAM 1 TOTAL
     Route: 042
     Dates: start: 20230911, end: 20230911
  5. PERJETA [Suspect]
     Active Substance: PERTUZUMAB
     Indication: Breast cancer
     Dosage: 840 MILLIGRAM FURTHER ADMINISTRATION WILL B
     Route: 042
     Dates: start: 20230828, end: 20230828
  6. PERJETA [Suspect]
     Active Substance: PERTUZUMAB
     Dosage: 420 MILLIGRAM FURTHER ADMINISTRATION WILL BE AC
     Route: 042
     Dates: start: 20230918, end: 20230918

REACTIONS (3)
  - Gastrointestinal toxicity [Unknown]
  - Vomiting [Unknown]
  - Diarrhoea [Unknown]

NARRATIVE: CASE EVENT DATE: 20230830
